FAERS Safety Report 8378054-X (Version None)
Quarter: 2012Q2

REPORT INFORMATION
  Report Type: 
  Country: None (occurrence: None)
  Receive Date: 20120522
  Receipt Date: 20120509
  Transmission Date: 20120825
  Serious: Yes (Hospitalization)
  Sender: FDA-Public Use
  Company Number: JP-ALEXION-A201100796

PATIENT
  Age: 73 Year
  Sex: Male

DRUGS (9)
  1. GLYCEOL [Concomitant]
     Dosage: 600 ML, QD
     Dates: start: 20110603, end: 20110608
  2. WARFARIN SODIUM [Suspect]
     Dosage: UNK
     Dates: end: 20110602
  3. NICARDIPINE HCL [Concomitant]
     Dosage: 20 MG, QD
     Dates: start: 20110603
  4. PROPOFOL [Concomitant]
     Dosage: UNK
     Dates: start: 20110603, end: 20110606
  5. CEFTRIAXONE SODIUM [Concomitant]
     Dosage: 2 G, QD
     Dates: start: 20110611, end: 20110619
  6. LOSARTAN POTASSIUM [Concomitant]
     Dosage: 50 MG, QD
     Dates: end: 20060602
  7. WARFARIN SODIUM [Suspect]
     Indication: CEREBRAL INFARCTION
     Dosage: 7 MG, QD
     Route: 048
     Dates: start: 20060301, end: 20060601
  8. SOLIRIS [Suspect]
     Indication: PAROXYSMAL NOCTURNAL HAEMOGLOBINURIA
     Dosage: 900 MG, Q2W
     Route: 042
     Dates: end: 20120623
  9. PLETAL [Concomitant]
     Indication: CEREBRAL INFARCTION
     Dosage: 100 MG, QD
     Dates: start: 20060301, end: 20060601

REACTIONS (1)
  - CEREBRAL HAEMORRHAGE [None]
